FAERS Safety Report 24913318 (Version 1)
Quarter: 2025Q1

REPORT INFORMATION
  Report Type: Spontaneous
  Country: SG (occurrence: SG)
  Receive Date: 20250201
  Receipt Date: 20250201
  Transmission Date: 20250409
  Serious: Yes (Hospitalization, Other)
  Sender: RISING PHARMACEUTICALS
  Company Number: SG-RISINGPHARMA-SG-2025RISLIT00050

PATIENT
  Sex: Female

DRUGS (5)
  1. INDOMETHACIN [Suspect]
     Active Substance: INDOMETHACIN
     Indication: Patent ductus arteriosus
     Route: 065
  2. CAFFEINE [Concomitant]
     Active Substance: CAFFEINE
     Indication: Product used for unknown indication
     Route: 065
  3. PENICILLIN [Concomitant]
     Active Substance: PENICILLIN
     Route: 065
  4. GENTAMICIN [Concomitant]
     Active Substance: GENTAMICIN
     Route: 065
  5. FLUCONAZOLE [Concomitant]
     Active Substance: FLUCONAZOLE
     Route: 065

REACTIONS (5)
  - Intussusception [Recovered/Resolved]
  - Necrotising enterocolitis neonatal [Recovered/Resolved]
  - Hypoperfusion [Recovered/Resolved]
  - Neonatal intestinal perforation [Recovered/Resolved]
  - Product use in unapproved indication [Unknown]
